FAERS Safety Report 24120511 (Version 1)
Quarter: 2024Q3

REPORT INFORMATION
  Report Type: Spontaneous
  Country: AU (occurrence: AU)
  Receive Date: 20240722
  Receipt Date: 20240722
  Transmission Date: 20241016
  Serious: Yes (Hospitalization)
  Sender: SANDOZ
  Company Number: AU-SANDOZ-SDZ2024AU066367

PATIENT
  Age: 55 Year
  Sex: Male
  Weight: 95 kg

DRUGS (10)
  1. ATEZOLIZUMAB [Suspect]
     Active Substance: ATEZOLIZUMAB
     Dosage: 1200 MG, Q3W (LOT NO: 1174388, MANUFACTURING BATCH DP H0314)
     Route: 042
     Dates: start: 20240530
  2. ATEZOLIZUMAB [Suspect]
     Active Substance: ATEZOLIZUMAB
     Indication: Colorectal cancer metastatic
     Route: 042
  3. MIGOPROTAFIB [Suspect]
     Active Substance: MIGOPROTAFIB
     Indication: Colorectal cancer metastatic
     Dosage: 60 MG, QD
     Route: 048
     Dates: start: 20240530
  4. OMEPRAZOLE [Suspect]
     Active Substance: OMEPRAZOLE
     Indication: Colorectal cancer metastatic
     Dosage: 40 MG, QD
     Route: 048
     Dates: start: 20240608
  5. OXYCODONE HYDROCHLORIDE [Concomitant]
     Active Substance: OXYCODONE HYDROCHLORIDE
     Indication: Pain
     Dosage: 10 MG
     Route: 048
     Dates: start: 2021
  6. ENOXAPARIN [Concomitant]
     Active Substance: ENOXAPARIN
     Indication: Product used for unknown indication
     Route: 065
  7. ENOXAPARIN [Concomitant]
     Active Substance: ENOXAPARIN
     Indication: Product used for unknown indication
     Route: 065
  8. Lycine [Concomitant]
     Indication: Prophylaxis
     Dosage: UNK
     Route: 048
  9. OXYCONTIN [Concomitant]
     Active Substance: OXYCODONE HYDROCHLORIDE
     Indication: Pain
     Dosage: 30 MG
     Route: 048
  10. SERETIDE [Concomitant]
     Active Substance: FLUTICASONE PROPIONATE\SALMETEROL XINAFOATE
     Indication: Asthma
     Dosage: 250 UG, DOSE FORM: INHALANT
     Route: 055
     Dates: start: 2016

REACTIONS (1)
  - Pneumonia [Recovered/Resolved]

NARRATIVE: CASE EVENT DATE: 20240611
